FAERS Safety Report 8336555-4 (Version None)
Quarter: 2012Q2

REPORT INFORMATION
  Report Type: 
  Country: None (occurrence: None)
  Receive Date: 20120504
  Receipt Date: 20111214
  Transmission Date: 20120825
  Serious: Yes (Hospitalization, Other)
  Sender: FDA-Public Use
  Company Number: CA-JNJFOC-20111207450

PATIENT
  Age: 70 Year
  Sex: Female
  Weight: 99.79 kg

DRUGS (5)
  1. KETOROLAC TROMETHAMINE [Concomitant]
     Indication: PSORIATIC ARTHROPATHY
     Route: 048
  2. METHOTREXATE [Concomitant]
     Indication: PSORIATIC ARTHROPATHY
     Route: 058
  3. CELEBREX [Concomitant]
     Indication: PSORIATIC ARTHROPATHY
     Route: 048
  4. SIMPONI [Suspect]
     Indication: PSORIATIC ARTHROPATHY
     Route: 058
     Dates: start: 20110606
  5. NSAIDS [Concomitant]
     Indication: PSORIATIC ARTHROPATHY
     Route: 048

REACTIONS (5)
  - CLOSTRIDIAL INFECTION [None]
  - CELLULITIS [None]
  - STAPHYLOCOCCAL INFECTION [None]
  - SINUSITIS [None]
  - LOCALISED INFECTION [None]
